FAERS Safety Report 7689721-5 (Version None)
Quarter: 2011Q3

REPORT INFORMATION
  Report Type: 
  Country: None (occurrence: None)
  Receive Date: 20110817
  Receipt Date: 20110815
  Transmission Date: 20111222
  Serious: Yes (Death)
  Sender: FDA-Public Use
  Company Number: US-BAYER-2011-052266

PATIENT
  Age: 76 Year
  Sex: Male

DRUGS (3)
  1. INSULIN [Concomitant]
     Indication: DIABETES MELLITUS
  2. AVELOX [Suspect]
     Indication: PNEUMONIA
     Dosage: UNK
     Dates: start: 20091009
  3. METFORMIN [Concomitant]
     Indication: DIABETES MELLITUS

REACTIONS (1)
  - CARDIAC ARREST [None]
